FAERS Safety Report 7767986-9 (Version None)
Quarter: 2011Q3

REPORT INFORMATION
  Report Type: 
  Country: None (occurrence: None)
  Receive Date: 20110922
  Receipt Date: 20110317
  Transmission Date: 20111222
  Serious: No
  Sender: FDA-Public Use
  Company Number: US-ASTRAZENECA-2011SE15066

PATIENT
  Age: 42 Year
  Sex: Female
  Weight: 97.5 kg

DRUGS (3)
  1. SEROQUEL [Suspect]
     Indication: BIPOLAR DISORDER
     Route: 048
  2. TONS OF MEDICATIONS [Concomitant]
  3. NEXIUM [Concomitant]

REACTIONS (2)
  - DRUG DOSE OMISSION [None]
  - MALAISE [None]
